FAERS Safety Report 4980220-8 (Version None)
Quarter: 2006Q2

REPORT INFORMATION
  Report Type: 
  Country: None (occurrence: None)
  Receive Date: 20060424
  Receipt Date: 20060411
  Transmission Date: 20061013
  Serious: Yes (Hospitalization)
  Sender: FDA-Public Use
  Company Number: FR-SOLVAY-00206001265

PATIENT
  Age: 83 Year
  Sex: Male
  Weight: 79 kg

DRUGS (12)
  1. PLAVIX [Concomitant]
     Indication: ILL-DEFINED DISORDER
     Dosage: DAILY DOSE:  UNKNOWN
     Route: 065
  2. COVERSYL [Suspect]
     Indication: ANGINA PECTORIS
     Dosage: DAILY DOSE: 2 MILLIGRAM(S)
     Route: 048
     Dates: end: 20060218
  3. CORDARONE [Concomitant]
     Indication: ILL-DEFINED DISORDER
     Dosage: DAILY DOSE:  UNKNOWN
     Route: 065
  4. CORVASAL [Interacting]
     Indication: ILL-DEFINED DISORDER
     Dosage: DAILY DOSE: 2 MILLIGRAM(S)
     Route: 048
     Dates: end: 20060219
  5. NEXIUM [Concomitant]
     Indication: ILL-DEFINED DISORDER
     Dosage: DAILY DOSE:  UNKNOWN
     Route: 065
  6. KREDEX [Interacting]
     Indication: ILL-DEFINED DISORDER
     Dosage: DAILY DOSE: 25 MILLIGRAM(S)
     Route: 048
  7. PERMIXON [Concomitant]
     Indication: ILL-DEFINED DISORDER
     Dosage: DAILY DOSE:  UNKNOWN
     Route: 065
  8. ADANCOR [Interacting]
     Indication: ILL-DEFINED DISORDER
     Dosage: DAILY DOSE: 2 DOSAGE FORM
     Route: 048
     Dates: end: 20060219
  9. ADANCOR [Interacting]
     Dosage: DAILY DOSE: .5 DOSAGE FORM
     Route: 048
     Dates: start: 20060221
  10. MOVICOL [Concomitant]
     Indication: ILL-DEFINED DISORDER
     Dosage: DAILY DOSE:  UNKNOWN
     Route: 065
  11. PARACETAMOL [Concomitant]
     Indication: ILL-DEFINED DISORDER
     Dosage: DAILY DOSE:  UNKNOWN
     Route: 065
  12. TARDYFERON [Concomitant]
     Indication: ILL-DEFINED DISORDER
     Dosage: DAILY DOSE:  UNKNOWN
     Route: 065

REACTIONS (7)
  - DRUG INTERACTION [None]
  - FALL [None]
  - GASTRIC CANCER [None]
  - GENERAL PHYSICAL HEALTH DETERIORATION [None]
  - HAEMATOMA [None]
  - ORTHOSTATIC HYPOTENSION [None]
  - VERTIGO [None]
